FAERS Safety Report 5042025-1 (Version None)
Quarter: 2006Q2

REPORT INFORMATION
  Report Type: 
  Country: None (occurrence: None)
  Receive Date: 20060630
  Receipt Date: 20060217
  Transmission Date: 20061013
  Serious: Yes (Hospitalization)
  Sender: FDA-Public Use
  Company Number: 2006ADE/NIFED-009

PATIENT
  Age: 53 Year
  Sex: Male

DRUGS (1)
  1. NIFEDIPINE [Suspect]
     Indication: HYPERTENSION
     Dosage: 30MG, 10MG X TOTAL, ORAL
     Route: 048

REACTIONS (2)
  - EPISTAXIS [None]
  - HYPERTENSION [None]
